FAERS Safety Report 10045673 (Version 2)
Quarter: 2014Q2

REPORT INFORMATION
  Report Type: Spontaneous
  Country: FR (occurrence: FR)
  Receive Date: 20140328
  Receipt Date: 20140409
  Transmission Date: 20141212
  Serious: Yes (Hospitalization, Disabling)
  Sender: FDA-Public Use
  Company Number: ALCN2014FR001946

PATIENT
  Age: 60 Year
  Sex: Female
  Weight: 84 kg

DRUGS (2)
  1. BSS [Suspect]
     Indication: CATARACT OPERATION
     Dosage: 1 DF, ONCE/SINGLE
     Route: 031
     Dates: start: 20131217, end: 20131217
  2. APROKAM [Suspect]
     Indication: CATARACT OPERATION
     Dosage: 1 DF, ONCE/SINGLE
     Route: 065
     Dates: start: 20131217, end: 20131217

REACTIONS (2)
  - Corneal oedema [Not Recovered/Not Resolved]
  - Corneal exfoliation [Not Recovered/Not Resolved]
